FAERS Safety Report 18699243 (Version 3)
Quarter: 2021Q1

REPORT INFORMATION
  Report Type: Spontaneous
  Country: HR (occurrence: HR)
  Receive Date: 20210105
  Receipt Date: 20210202
  Transmission Date: 20210419
  Serious: Yes (Other)
  Sender: FDA-Public Use
  Company Number: HR-JNJFOC-20210102382

PATIENT
  Age: 77 Year
  Sex: Male

DRUGS (8)
  1. INDAPAMIDE. [Concomitant]
     Active Substance: INDAPAMIDE
     Dosage: 1.5 MG
  2. PANTOPRAZOLE [Concomitant]
     Active Substance: PANTOPRAZOLE
     Dosage: 40 MG
  3. EYE DROPS [NAPHAZOLINE HYDROCHLORIDE] [Concomitant]
  4. LOSARTAN. [Concomitant]
     Active Substance: LOSARTAN
     Dosage: 50 MG
  5. LERCANIDIPINE [Concomitant]
     Active Substance: LERCANIDIPINE
     Dosage: 10 MG
  6. XARELTO [Suspect]
     Active Substance: RIVAROXABAN
     Indication: PRODUCT USED FOR UNKNOWN INDICATION
     Dosage: 15 MG, BID
     Route: 048
  7. TRAMADOL + PARACETAMOL [Concomitant]
     Active Substance: ACETAMINOPHEN\TRAMADOL
  8. XARELTO [Suspect]
     Active Substance: RIVAROXABAN
     Route: 048

REACTIONS (5)
  - Depression [Recovering/Resolving]
  - Anxiety [Recovering/Resolving]
  - Adjustment disorder [Recovering/Resolving]
  - Dyspnoea exertional [Recovering/Resolving]
  - Dyspnoea [Recovering/Resolving]
